FAERS Safety Report 16476628 (Version 1)
Quarter: 2019Q2

REPORT INFORMATION
  Report Type: Spontaneous
  Country: JP (occurrence: JP)
  Receive Date: 20190626
  Receipt Date: 20190626
  Transmission Date: 20190711
  Serious: Yes (Other)
  Sender: FDA-Public Use
  Company Number: JP-SA-2019SA171357

PATIENT
  Age: 63 Year
  Sex: Male

DRUGS (3)
  1. BICALUTAMIDE. [Suspect]
     Active Substance: BICALUTAMIDE
     Indication: ADENOCARCINOMA
     Dosage: 80 MG, QD
  2. DOCETAXEL. [Suspect]
     Active Substance: DOCETAXEL
     Indication: ADENOCARCINOMA
     Dosage: 70 MG/M2, Q3W
  3. DEGARELIX ACETATE [Suspect]
     Active Substance: DEGARELIX ACETATE
     Indication: ADENOCARCINOMA

REACTIONS (4)
  - Dizziness [Unknown]
  - Prostate cancer metastatic [Unknown]
  - Brain cancer metastatic [Unknown]
  - Central nervous system lesion [Unknown]

NARRATIVE: CASE EVENT DATE: 201612
